FAERS Safety Report 13246173 (Version 2)
Quarter: 2017Q2

REPORT INFORMATION
  Report Type: Spontaneous
  Country: US (occurrence: US)
  Receive Date: 20170217
  Receipt Date: 20170424
  Transmission Date: 20170830
  Serious: No
  Sender: FDA-Public Use
  Company Number: US-INCYTE CORPORATION-2017IN000815

PATIENT
  Sex: Female

DRUGS (9)
  1. BABY ASPIRIN [Concomitant]
     Active Substance: ASPIRIN
     Indication: PRODUCT USED FOR UNKNOWN INDICATION
     Dosage: TWO BABY ASPIRIN AT NIGHT
  2. HYDROXYUREA. [Concomitant]
     Active Substance: HYDROXYUREA
     Dosage: ONE CAPSULE, THREE TIMES A WEEK
     Route: 048
     Dates: start: 20170303
  3. JAKAFI [Suspect]
     Active Substance: RUXOLITINIB
     Indication: MYELOFIBROSIS
     Dosage: 20 MG, BID
     Route: 048
     Dates: start: 201701
  4. IBUPROFEN. [Concomitant]
     Active Substance: IBUPROFEN
     Indication: PRODUCT USED FOR UNKNOWN INDICATION
     Dosage: ONE OCCASIONALLY AT NIGHT
  5. COLCHICINE. [Concomitant]
     Active Substance: COLCHICINE
     Indication: GOUT
  6. HYDROXYUREA. [Concomitant]
     Active Substance: HYDROXYUREA
     Indication: JANUS KINASE 2 MUTATION
     Dosage: 500 MG, TWICE A WEEK
     Route: 048
     Dates: start: 20170217, end: 20170303
  7. ALLOPURINOL. [Concomitant]
     Active Substance: ALLOPURINOL
     Indication: GOUT
  8. JAKAFI [Suspect]
     Active Substance: RUXOLITINIB
     Indication: JANUS KINASE 2 MUTATION
     Dosage: 20 MG, QOD
     Route: 048
     Dates: start: 2017, end: 20170217
  9. HYDROXYUREA. [Concomitant]
     Active Substance: HYDROXYUREA
     Indication: POLYCYTHAEMIA VERA
     Dosage: UNK
     Route: 048
     Dates: end: 201701

REACTIONS (11)
  - White blood cell count increased [Unknown]
  - Anxiety [Unknown]
  - Arthralgia [Unknown]
  - Fatigue [Unknown]
  - Joint swelling [Unknown]
  - Eating disorder [Recovering/Resolving]
  - Sleep disorder due to a general medical condition [Recovered/Resolved]
  - Erythema [Not Recovered/Not Resolved]
  - Somnolence [Unknown]
  - Drug dose omission [Unknown]
  - Haemoglobin decreased [Unknown]

NARRATIVE: CASE EVENT DATE: 2017
